FAERS Safety Report 9198265 (Version 4)
Quarter: 2013Q4

REPORT INFORMATION
  Report Type: Spontaneous
  Country: NZ (occurrence: NZ)
  Receive Date: 20130329
  Receipt Date: 20131121
  Transmission Date: 20140711
  Serious: No
  Sender: FDA-Public Use
  Company Number: NZ-BIOGENIDEC-2013BI029454

PATIENT
  Sex: Female
  Weight: 4 kg

DRUGS (1)
  1. AVONEX [Suspect]
     Indication: PRODUCT USED FOR UNKNOWN INDICATION
     Route: 064
     Dates: start: 20110317, end: 20130110

REACTIONS (1)
  - Large for dates baby [Unknown]
